FAERS Safety Report 21413778 (Version 1)
Quarter: 2022Q4

REPORT INFORMATION
  Report Type: Spontaneous
  Country: US (occurrence: US)
  Receive Date: 20221006
  Receipt Date: 20221006
  Transmission Date: 20230112
  Serious: No
  Sender: FDA-Public Use
  Company Number: US-ALLERGAN-2222881US

PATIENT
  Age: 49 Year
  Sex: Female

DRUGS (2)
  1. QULIPTA [Suspect]
     Active Substance: ATOGEPANT
     Indication: Product used for unknown indication
     Dosage: 60 UNITS, QD
     Route: 048
     Dates: start: 20220708
  2. QULIPTA [Suspect]
     Active Substance: ATOGEPANT
     Dosage: 60 UNITS, QD
     Route: 048
     Dates: start: 20220727, end: 20220825

REACTIONS (3)
  - Illness [Unknown]
  - Migraine [Unknown]
  - Drug ineffective [Unknown]

NARRATIVE: CASE EVENT DATE: 20220701
